FAERS Safety Report 16900408 (Version 1)
Quarter: 2019Q4

REPORT INFORMATION
  Report Type: Spontaneous
  Country: DE (occurrence: DE)
  Receive Date: 20191009
  Receipt Date: 20191009
  Transmission Date: 20200122
  Serious: Yes (Life-Threatening, Hospitalization, Other)
  Sender: FDA-Public Use
  Company Number: DE-ASTRAZENECA-2019SF39550

PATIENT
  Age: 43 Year
  Sex: Female

DRUGS (5)
  1. TIOTROPIUM [Concomitant]
     Active Substance: TIOTROPIUM
     Indication: ASTHMA
     Dosage: 18 UG TWICE DAILY
     Route: 055
  2. QUETIAPINE. [Suspect]
     Active Substance: QUETIAPINE
     Dosage: UNKNOWN DOSES
     Route: 048
  3. IBUPROFEN. [Suspect]
     Active Substance: IBUPROFEN
     Dosage: UNKNOWN DOSES
     Route: 065
  4. TRICYCLIC ANTIDEPRESSANTS [Suspect]
     Active Substance: UNSPECIFIED INGREDIENT
     Route: 065
  5. BUDESONIDE;FORMOTEROL [Concomitant]
     Active Substance: BUDESONIDE\FORMOTEROL
     Indication: ASTHMA
     Dosage: FIXED-DOSE COMBINATION (320/9 ?G TWICE DAILY)
     Route: 055

REACTIONS (7)
  - Lung infiltration [Recovered/Resolved]
  - Toxicity to various agents [Recovered/Resolved]
  - Respiratory acidosis [Recovered/Resolved]
  - Asthma [Recovered/Resolved]
  - Suicide attempt [Recovered/Resolved]
  - Status asthmaticus [Recovered/Resolved]
  - Hypercapnia [Recovered/Resolved]
